FAERS Safety Report 9550017 (Version 2)
Quarter: 2013Q4

REPORT INFORMATION
  Report Type: Spontaneous
  Country: FI (occurrence: FI)
  Receive Date: 20130924
  Receipt Date: 20131028
  Transmission Date: 20140711
  Serious: Yes (Other)
  Sender: FDA-Public Use
  Company Number: FI-GLAXOSMITHKLINE-B0922774A

PATIENT
  Age: 67 Year
  Sex: Female

DRUGS (1)
  1. REVOLADE [Suspect]
     Indication: PRODUCT USED FOR UNKNOWN INDICATION
     Dosage: 50MG UNKNOWN
     Route: 065
     Dates: start: 20070611

REACTIONS (4)
  - Plasma cell myeloma [Unknown]
  - Protein total abnormal [Unknown]
  - Anaemia [Unknown]
  - Thrombocytopenia [Unknown]
